FAERS Safety Report 10171450 (Version 1)
Quarter: 2014Q2

REPORT INFORMATION
  Report Type: Spontaneous
  Country: US (occurrence: None)
  Receive Date: 20140513
  Receipt Date: 20140513
  Transmission Date: 20141212
  Serious: Yes (Hospitalization)
  Sender: FDA-Public Use
  Company Number: None

PATIENT
  Age: 30 Year
  Sex: Male

DRUGS (2)
  1. AZITHROMYCIN [Suspect]
     Indication: PNEUMONIA
     Route: 048
     Dates: start: 20140101, end: 20140101
  2. AZITHROMYCIN [Concomitant]

REACTIONS (4)
  - Respiratory failure [None]
  - Electrocardiogram QT prolonged [None]
  - Bradycardia [None]
  - Pulseless electrical activity [None]
